FAERS Safety Report 8966123 (Version 1)
Quarter: 2012Q4

REPORT INFORMATION
  Report Type: 
  Country: US (occurrence: US)
  Receive Date: 20121217
  Receipt Date: 20121217
  Transmission Date: 20130627
  Serious: No
  Sender: FDA-Public Use
  Company Number: US-PFIZER INC-2012315578

PATIENT
  Age: 68 Year
  Sex: Male

DRUGS (1)
  1. INLYTA [Suspect]
     Indication: RENAL CELL CARCINOMA
     Dosage: 5 mg, 2x/day
     Dates: start: 20121203

REACTIONS (6)
  - Fatigue [Unknown]
  - Dysgeusia [Unknown]
  - Skin exfoliation [Unknown]
  - Dry skin [Unknown]
  - Skin hypertrophy [Unknown]
  - Skin fissures [Unknown]
